FAERS Safety Report 19122251 (Version 1)
Quarter: 2021Q2

REPORT INFORMATION
  Report Type: Spontaneous
  Country: JP (occurrence: JP)
  Receive Date: 20210412
  Receipt Date: 20210412
  Transmission Date: 20210717
  Serious: Yes (Death, Other)
  Sender: FDA-Public Use
  Company Number: JP-AMGEN-JPNSP2021054175

PATIENT
  Age: 64 Year
  Sex: Male

DRUGS (12)
  1. DARBEPOETIN ALFA [Suspect]
     Active Substance: DARBEPOETIN ALFA
     Indication: NEPHROGENIC ANAEMIA
     Dosage: 20 UG, 1X/WEEK
     Route: 065
     Dates: start: 20201019
  2. HUMULIN R [Concomitant]
     Active Substance: INSULIN HUMAN
     Dosage: UNK
     Route: 065
  3. LANSOPRAZOLE. [Concomitant]
     Active Substance: LANSOPRAZOLE
     Dosage: UNK
     Route: 065
  4. DAPRODUSTAT [Concomitant]
     Active Substance: DAPRODUSTAT
     Indication: NEPHROGENIC ANAEMIA
     Dosage: 4 MG, QD
     Route: 048
     Dates: start: 20201102
  5. DAPRODUSTAT [Concomitant]
     Active Substance: DAPRODUSTAT
     Dosage: 6 MG, QD
     Route: 048
     Dates: start: 20201221, end: 20210210
  6. WARFARIN [WARFARIN POTASSIUM] [Concomitant]
     Active Substance: WARFARIN POTASSIUM
     Dosage: UNK
     Route: 048
  7. VITAMEDIN [BENFOTIAMINE;CYANOCOBALAMIN;PYRIDOXINE HYDROCHLORIDE] [Concomitant]
     Dosage: UNK
     Route: 065
  8. DOGMATYL [Concomitant]
     Active Substance: SULPIRIDE
     Dosage: UNK
     Route: 065
  9. DARBEPOETIN ALFA [Suspect]
     Active Substance: DARBEPOETIN ALFA
     Dosage: 40 UG, 1X/WEEK
     Route: 065
     Dates: start: 20201026
  10. ACETAMINOPHEN. [Concomitant]
     Active Substance: ACETAMINOPHEN
     Dosage: UNK
     Route: 065
  11. ALINAMIN?F [FURSULTIAMINE HYDROCHLORIDE] [Concomitant]
     Dosage: UNK
     Route: 065
  12. NITRODERM [Concomitant]
     Active Substance: NITROGLYCERIN
     Dosage: UNK

REACTIONS (2)
  - Cardiac failure [Fatal]
  - Shoshin beriberi [Fatal]
